FAERS Safety Report 12205656 (Version 1)
Quarter: 2016Q1

REPORT INFORMATION
  Report Type: Spontaneous
  Country: US (occurrence: US)
  Receive Date: 20160323
  Receipt Date: 20160323
  Transmission Date: 20160526
  Serious: No
  Sender: FDA-Public Use
  Company Number: US-BAYER-2016-056353

PATIENT
  Age: 64 Year
  Sex: Female

DRUGS (1)
  1. CLIMARA [Suspect]
     Active Substance: ESTRADIOL
     Indication: MENOPAUSE
     Dosage: 0.025 MG, UNK
     Route: 062

REACTIONS (3)
  - Therapy cessation [None]
  - Product adhesion issue [None]
  - Drug ineffective [None]

NARRATIVE: CASE EVENT DATE: 201603
